FAERS Safety Report 25140418 (Version 1)
Quarter: 2025Q1

REPORT INFORMATION
  Report Type: Spontaneous
  Country: US (occurrence: None)
  Receive Date: 20250328
  Receipt Date: 20250328
  Transmission Date: 20250408
  Serious: No
  Sender: FDA-CTU
  Company Number: None

PATIENT
  Age: 61 Year
  Sex: Female

DRUGS (1)
  1. STELARA [Suspect]
     Active Substance: USTEKINUMAB
     Indication: Proctitis ulcerative
     Route: 058
     Dates: start: 20240829

REACTIONS (2)
  - Fracture [None]
  - Therapy interrupted [None]

NARRATIVE: CASE EVENT DATE: 20250327
